FAERS Safety Report 8171143-4 (Version None)
Quarter: 2012Q1

REPORT INFORMATION
  Report Type: 
  Country: None (occurrence: None)
  Receive Date: 20120228
  Receipt Date: 20111102
  Transmission Date: 20120608
  Serious: No
  Sender: FDA-Public Use
  Company Number: US-BRISTOL-MYERS SQUIBB COMPANY-16143836

PATIENT
  Age: 78 Year
  Sex: Female

DRUGS (1)
  1. ONGLYZA [Suspect]
     Dosage: 1DF:1 PACK

REACTIONS (1)
  - CONSTIPATION [None]
